FAERS Safety Report 8086331-5 (Version None)
Quarter: 2012Q1

REPORT INFORMATION
  Report Type: 
  Country: None (occurrence: None)
  Receive Date: 20120128
  Receipt Date: 20110506
  Transmission Date: 20120608
  Serious: No
  Sender: FDA-Public Use
  Company Number: US-ABBOTT-11P-163-0724398-00

PATIENT
  Sex: Female

DRUGS (5)
  1. UNKNOWN MEDICATION [Concomitant]
     Indication: ONYCHOMYCOSIS
  2. ACID PEX [Concomitant]
     Indication: GASTRIC DISORDER
  3. CALCIUM [Concomitant]
     Indication: MINERAL SUPPLEMENTATION
  4. HUMIRA [Suspect]
     Indication: PSORIASIS
     Route: 058
     Dates: start: 20110425
  5. ACID PEX [Concomitant]
     Indication: GASTRIC PH INCREASED

REACTIONS (4)
  - INJECTION SITE WARMTH [None]
  - RASH [None]
  - INFLAMMATION [None]
  - ERYTHEMA [None]
